FAERS Safety Report 15782612 (Version 4)
Quarter: 2019Q1

REPORT INFORMATION
  Report Type: Report from Study
  Country: US (occurrence: US)
  Receive Date: 20190102
  Receipt Date: 20190212
  Transmission Date: 20190417
  Serious: Yes (Death, Hospitalization)
  Sender: FDA-Public Use
  Company Number: US-ACTELION-A-NJ2018-177182

PATIENT
  Age: 9 Month
  Sex: Female

DRUGS (14)
  1. NITRIC OXIDE. [Suspect]
     Active Substance: NITRIC OXIDE
     Indication: PULMONARY ARTERIAL HYPERTENSION
     Route: 065
  2. LASIX [Concomitant]
     Active Substance: FUROSEMIDE
     Dosage: 7 MG, QID
     Route: 042
     Dates: start: 20171124
  3. LASIX [Concomitant]
     Active Substance: FUROSEMIDE
     Dosage: 1.7 MG/KG PER GT Q12HRS
  4. VENTAVIS [Suspect]
     Active Substance: ILOPROST
     Indication: PULMONARY HYPERTENSION
     Dosage: UNK
     Route: 055
     Dates: end: 20180427
  5. REMODULIN [Suspect]
     Active Substance: TREPROSTINIL
     Dosage: 73 NG/KG, PER MIN
     Route: 058
     Dates: start: 20180423
  6. REMODULIN [Suspect]
     Active Substance: TREPROSTINIL
     Dosage: 115 NG/KG, PER MIN
     Route: 058
     Dates: start: 20180423, end: 20181119
  7. SILDENAFIL. [Suspect]
     Active Substance: SILDENAFIL
     Indication: PRODUCT USED FOR UNKNOWN INDICATION
     Dosage: 7 MG, TID PER GT
     Route: 065
     Dates: start: 20181227
  8. DIURIL [Concomitant]
     Active Substance: CHLOROTHIAZIDE
     Dosage: 70 MG, QID
     Route: 042
     Dates: start: 20180407
  9. DIURIL [Concomitant]
     Active Substance: CHLOROTHIAZIDE
     Dosage: 10 MG/KG, Q12HRS
  10. ASPIRIN. [Concomitant]
     Active Substance: ASPIRIN
     Dosage: 20.25 MG, QD
     Dates: end: 20181119
  11. REMODULIN [Suspect]
     Active Substance: TREPROSTINIL
     Indication: PULMONARY HYPERTENSION
     Dosage: 70 NG/KG, PER MIN
     Route: 058
  12. ASPIRIN. [Concomitant]
     Active Substance: ASPIRIN
     Dosage: 20 MG, QD PER GT
     Dates: start: 20180707, end: 20181119
  13. BOSENTAN TABLET 32 MG PED US [Suspect]
     Active Substance: BOSENTAN
     Indication: PULMONARY HYPERTENSION
     Dosage: 16 MG, BID PER GT
     Route: 048
     Dates: start: 20180131
  14. REMODULIN [Suspect]
     Active Substance: TREPROSTINIL
     Dosage: 100 NG/KG, PER MIN
     Route: 058

REACTIONS (5)
  - Infection [Unknown]
  - Pulmonary hypertension [Fatal]
  - Cardiac arrest [Fatal]
  - Flushing [Recovered/Resolved]
  - Hypoxia [Fatal]

NARRATIVE: CASE EVENT DATE: 20180914
